FAERS Safety Report 8760040 (Version 3)
Quarter: 2012Q4

REPORT INFORMATION
  Report Type: 
  Country: JP (occurrence: JP)
  Receive Date: 20120829
  Receipt Date: 20120921
  Transmission Date: 20130627
  Serious: Yes (Hospitalization)
  Sender: FDA-Public Use
  Company Number: JP-ROCHE-1108754

PATIENT
  Age: 21 Year
  Sex: Female

DRUGS (2)
  1. ACTEMRA [Suspect]
     Indication: STILL^S DISEASE ADULT ONSET
     Dosage: Dosage is uncertain.
     Route: 041
     Dates: start: 2012, end: 2012
  2. ACTEMRA [Suspect]
     Indication: OFF LABEL USE
     Dosage: Dosage is uncertain.
     Route: 041
     Dates: start: 2012

REACTIONS (1)
  - Pyrexia [Recovering/Resolving]
